FAERS Safety Report 8994725 (Version 2)
Quarter: 2013Q1

REPORT INFORMATION
  Report Type: Spontaneous
  Country: US (occurrence: US)
  Receive Date: 20130102
  Receipt Date: 20130204
  Transmission Date: 20140127
  Serious: No
  Sender: FDA-Public Use
  Company Number: US-AMGEN-USASP2012078964

PATIENT
  Age: 63 Year
  Sex: Female
  Weight: 76.19 kg

DRUGS (6)
  1. ENBREL [Suspect]
     Indication: PSORIATIC ARTHROPATHY
     Dosage: 50 MG, 2 TIMES/WK
     Dates: start: 201208
  2. ENBREL [Suspect]
     Indication: PSORIASIS
  3. TRAMADIN [Concomitant]
     Dosage: 10 MG, QHS
     Route: 048
     Dates: start: 201201
  4. CLARITIN                           /00413701/ [Concomitant]
     Dosage: UNK UNK, QD
     Route: 048
     Dates: start: 201201
  5. VICODIN [Concomitant]
     Dosage: 325/7.5, QD
     Route: 048
     Dates: start: 201201
  6. OXYCODONE [Concomitant]
     Dosage: 5 MG, BID
     Route: 048
     Dates: start: 201201

REACTIONS (4)
  - Cystitis [Not Recovered/Not Resolved]
  - Limb injury [Not Recovered/Not Resolved]
  - Laceration [Not Recovered/Not Resolved]
  - Sinusitis [Recovered/Resolved]
